FAERS Safety Report 9451056 (Version 3)
Quarter: 2013Q4

REPORT INFORMATION
  Report Type: Report from Study
  Country: CA (occurrence: CA)
  Receive Date: 20130809
  Receipt Date: 20131211
  Transmission Date: 20140711
  Serious: Yes (Other)
  Sender: FDA-Public Use
  Company Number: CA-ROCHE-1177316

PATIENT
  Age: 42 Year
  Sex: Female
  Weight: 72.6 kg

DRUGS (11)
  1. RITUXAN [Suspect]
     Indication: RHEUMATOID ARTHRITIS
     Dosage: DAY 1 + DAY 15
     Route: 042
     Dates: start: 20120528
  2. ACTEMRA [Suspect]
     Indication: RHEUMATOID ARTHRITIS
     Route: 042
     Dates: start: 20110609, end: 20120404
  3. DICLOFENAC [Concomitant]
     Route: 065
  4. HYDROCHLOROTHIAZIDE [Concomitant]
     Route: 065
  5. PANTOLOC [Concomitant]
     Route: 065
  6. DIPHENHYDRAMINE HCL [Concomitant]
     Indication: PREMEDICATION
     Route: 048
     Dates: start: 20120528
  7. ACETAMINOPHEN [Concomitant]
     Indication: PREMEDICATION
     Route: 048
     Dates: start: 20120528
  8. METHYLPREDNISOLONE [Concomitant]
     Indication: PREMEDICATION
     Route: 042
     Dates: start: 20120528
  9. METHYLPREDNISOLONE [Concomitant]
     Route: 042
     Dates: start: 20120611
  10. TECTA [Concomitant]
     Route: 065
  11. NASONEX [Concomitant]
     Indication: HYPERSENSITIVITY
     Route: 065

REACTIONS (10)
  - Blood pressure decreased [Unknown]
  - Nasopharyngitis [Unknown]
  - Dizziness [Recovered/Resolved]
  - Cough [Not Recovered/Not Resolved]
  - Pain [Recovered/Resolved]
  - Muscular weakness [Recovered/Resolved]
  - Fatigue [Recovered/Resolved]
  - Rheumatoid arthritis [Not Recovered/Not Resolved]
  - Headache [Recovered/Resolved]
  - Asthenia [Recovered/Resolved]
